FAERS Safety Report 6201549-1 (Version None)
Quarter: 2009Q2

REPORT INFORMATION
  Report Type: 
  Country: None (occurrence: None)
  Receive Date: 20090519
  Receipt Date: 20090512
  Transmission Date: 20091009
  Serious: Yes (Other)
  Sender: FDA-Public Use
  Company Number: ENT 2009-0075

PATIENT
  Age: 76 Year
  Sex: Female

DRUGS (5)
  1. COMTAN [Suspect]
     Indication: DRUG EFFECT DECREASED
     Dosage: ORAL
     Route: 048
     Dates: start: 20080408
  2. SYMMETREL [Suspect]
     Indication: PARKINSON'S DISEASE
     Dosage: 150 MG/DAY ORAL
     Route: 048
     Dates: start: 20080301
  3. PRAMIPEXOLE DIHYDROCHLORIDE [Suspect]
     Indication: PARKINSON'S DISEASE
     Dosage: 1 MG/DAY ORAL
     Route: 048
     Dates: start: 20080301
  4. CARBIDOPA AND LEVODOPA [Concomitant]
  5. MEVALOTIN [Concomitant]

REACTIONS (2)
  - AMNESIA [None]
  - SUDDEN ONSET OF SLEEP [None]
